FAERS Safety Report 7313576-1 (Version None)
Quarter: 2011Q1

REPORT INFORMATION
  Report Type: 
  Country: None (occurrence: None)
  Receive Date: 20110215
  Receipt Date: 20110215
  Transmission Date: 20110831
  Serious: Yes (Hospitalization)
  Sender: FDA-Public Use
  Company Number: None

PATIENT
  Sex: Male
  Weight: 81.6475 kg

DRUGS (14)
  1. NEXIUM [Concomitant]
  2. OXYCODONE HCL AND ACETAMINOPHEN [Concomitant]
  3. TYLENOL EXTRA STRENGTH [Concomitant]
  4. ZOLOFT [Concomitant]
  5. CENTRUM [Concomitant]
  6. IMODIUM MULTI-SYMPTOM RELIEF [Concomitant]
  7. MIRALAX [Concomitant]
  8. MAGIC MOUTHWASH [Concomitant]
  9. XOPENEX [Concomitant]
  10. ERBITUX [Suspect]
     Indication: METASTATIC NEOPLASM
     Dosage: 980MG Q 2 WEEKS IV DRIP
     Route: 041
     Dates: start: 20110112, end: 20110112
  11. ZOFRAN [Concomitant]
  12. COLACE [Concomitant]
  13. LOVENOX [Concomitant]
  14. COMPAZINE [Concomitant]

REACTIONS (6)
  - DIZZINESS [None]
  - HYPERHIDROSIS [None]
  - ATRIAL FIBRILLATION [None]
  - PALLOR [None]
  - BLOOD PRESSURE SYSTOLIC DECREASED [None]
  - UNRESPONSIVE TO STIMULI [None]
